FAERS Safety Report 24198224 (Version 2)
Quarter: 2024Q3

REPORT INFORMATION
  Report Type: Spontaneous
  Country: US (occurrence: US)
  Receive Date: 20240812
  Receipt Date: 20240816
  Transmission Date: 20241017
  Serious: No
  Sender: SANOFI AVENTIS
  Company Number: US-SANOFI-02171530

PATIENT
  Age: 71 Year
  Sex: Male

DRUGS (3)
  1. MULTAQ [Suspect]
     Active Substance: DRONEDARONE
     Indication: Atrial fibrillation
     Dosage: 400 MG, BID (400 MG BID AND DRUG TREATMENT DURATION:CLOSE TO 2 YEARS
  2. ELIQUIS [Concomitant]
     Active Substance: APIXABAN
     Indication: Cardioversion
     Dosage: UNK
  3. PLAVIX [Concomitant]
     Active Substance: CLOPIDOGREL BISULFATE
     Indication: Cardioversion
     Dosage: UNK

REACTIONS (1)
  - Bradycardia [Unknown]
